FAERS Safety Report 4944695-2 (Version None)
Quarter: 2006Q1

REPORT INFORMATION
  Report Type: 
  Country: None (occurrence: None)
  Receive Date: 20060315
  Receipt Date: 20060303
  Transmission Date: 20060701
  Serious: Yes (Other)
  Sender: FDA-Public Use
  Company Number: PHRM2006FR00940

PATIENT
  Age: 72 Year
  Sex: Female

DRUGS (3)
  1. NISIS [Suspect]
     Indication: HYPERTENSION
     Dosage: 80 MG, QD
     Route: 048
     Dates: start: 20050401
  2. TAHOR [Concomitant]
     Dosage: 1 DF, QD
     Route: 048
  3. CYNOMEL [Concomitant]
     Indication: THYROIDECTOMY
     Route: 048
     Dates: start: 19920101

REACTIONS (6)
  - ASTHMA [None]
  - COUGH [None]
  - NASOPHARYNGITIS [None]
  - RHINITIS ALLERGIC [None]
  - SNEEZING [None]
  - THROAT IRRITATION [None]
